FAERS Safety Report 11415738 (Version 1)
Quarter: 2015Q3

REPORT INFORMATION
  Report Type: Spontaneous
  Country: US (occurrence: None)
  Receive Date: 20150824
  Receipt Date: 20150824
  Transmission Date: 20151125
  Serious: Yes (Other)
  Sender: FDA-Public Use
  Company Number: None

PATIENT
  Age: 42 Year
  Sex: Male
  Weight: 72.58 kg

DRUGS (1)
  1. TOBRAMYCIN DEXAMETHASONE [Suspect]
     Active Substance: DEXAMETHASONE\TOBRAMYCIN
     Indication: EYE INFECTION
     Dosage: 1 DROP BOTH EYES
     Route: 047
     Dates: start: 20150807, end: 20150814

REACTIONS (1)
  - Vision blurred [None]

NARRATIVE: CASE EVENT DATE: 20150807
